FAERS Safety Report 16995025 (Version 6)
Quarter: 2019Q4

REPORT INFORMATION
  Report Type: Report from Study
  Country: DE (occurrence: DE)
  Receive Date: 20191105
  Receipt Date: 20191219
  Transmission Date: 20200122
  Serious: Yes (Hospitalization)
  Sender: FDA-Public Use
  Company Number: DE-EISAI MEDICAL RESEARCH-EC-2019-064025

PATIENT
  Age: 63 Year
  Sex: Male
  Weight: 85.2 kg

DRUGS (4)
  1. PANTOPRAZOLE [Concomitant]
     Active Substance: PANTOPRAZOLE
     Dates: start: 20190920, end: 20191007
  2. DEXAMETHASONE. [Concomitant]
     Active Substance: DEXAMETHASONE
     Dates: start: 20190921, end: 20191007
  3. PEMBROLIZUMAB. [Suspect]
     Active Substance: PEMBROLIZUMAB
     Indication: GLIOBLASTOMA
     Route: 041
     Dates: start: 20191008, end: 20191008
  4. LENVATINIB [Suspect]
     Active Substance: LENVATINIB
     Indication: GLIOBLASTOMA
     Route: 048
     Dates: start: 20191008, end: 20191021

REACTIONS (2)
  - Embolism [Recovered/Resolved with Sequelae]
  - Back pain [Not Recovered/Not Resolved]

NARRATIVE: CASE EVENT DATE: 20191010
